FAERS Safety Report 6134209-6 (Version None)
Quarter: 2009Q1

REPORT INFORMATION
  Report Type: 
  Country: None (occurrence: None)
  Receive Date: 20090325
  Receipt Date: 20090308
  Transmission Date: 20090719
  Serious: Yes (Other)
  Sender: FDA-Public Use
  Company Number: 2005S1000140

PATIENT
  Age: 54 Year
  Sex: Male
  Weight: 102.5129 kg

DRUGS (18)
  1. PHOSPHOSODA GINGER LEMON [Suspect]
     Indication: SURGERY
     Dosage: 90 ML; TOTAL; PO
     Route: 048
     Dates: start: 20020114, end: 20020115
  2. VERSED [Concomitant]
  3. FENTANYL-25 [Concomitant]
  4. KLOR-CON [Concomitant]
  5. XANAX [Concomitant]
  6. FLOMAX [Concomitant]
  7. ZESTORETIC [Concomitant]
  8. TOPROL-XL [Concomitant]
  9. ADVAIR HFA [Concomitant]
  10. HUMIBID LA [Concomitant]
  11. PRILOSEC [Concomitant]
  12. REGLAN [Concomitant]
  13. FLAGYL [Concomitant]
  14. NEOMYCIN [Concomitant]
  15. ANTIBIOTICS [Concomitant]
  16. FLEET ENEMA (SODIUM PHOSPHATE) [Concomitant]
  17. FLEET PHOSPHO-SODA /01605601/ [Concomitant]
  18. FLEET ENEMA (SODIUM PHOSPHATE) [Concomitant]

REACTIONS (8)
  - ARTERIOSCLEROSIS [None]
  - GLOMERULOSCLEROSIS [None]
  - HYPERPARATHYROIDISM [None]
  - KIDNEY FIBROSIS [None]
  - NEPHROCALCINOSIS [None]
  - POSTOPERATIVE RENAL FAILURE [None]
  - RENAL FAILURE ACUTE [None]
  - TUBULOINTERSTITIAL NEPHRITIS [None]
